FAERS Safety Report 9866921 (Version 2)
Quarter: 2014Q1

REPORT INFORMATION
  Report Type: Spontaneous
  Country: US (occurrence: US)
  Receive Date: 20140204
  Receipt Date: 20140326
  Transmission Date: 20141002
  Serious: No
  Sender: FDA-Public Use
  Company Number: US-PFIZER INC-2014030071

PATIENT
  Age: 50 Year
  Sex: Female

DRUGS (1)
  1. PREMPRO [Suspect]
     Dosage: 0.3 MG/1.5 MG, UNK

REACTIONS (1)
  - Drug ineffective [Unknown]
